FAERS Safety Report 15299581 (Version 2)
Quarter: 2018Q4

REPORT INFORMATION
  Report Type: Report from Study
  Country: US (occurrence: US)
  Receive Date: 20180821
  Receipt Date: 20181022
  Transmission Date: 20190204
  Serious: Yes (Death, Other)
  Sender: FDA-Public Use
  Company Number: US-BAYER-2018-149098

PATIENT
  Sex: Male

DRUGS (3)
  1. XOFIGO [Suspect]
     Active Substance: RADIUM RA-223 DICHLORIDE
     Indication: HORMONE-REFRACTORY PROSTATE CANCER
     Dosage: 97.10 UCI, ONCE EVERY 28 DAYS
     Route: 042
     Dates: start: 20180712
  2. XOFIGO [Suspect]
     Active Substance: RADIUM RA-223 DICHLORIDE
     Indication: HORMONE-REFRACTORY PROSTATE CANCER
     Dosage: 97.10 UCI, ONCE EVERY 28 DAYS
     Route: 042
     Dates: start: 20180510
  3. XOFIGO [Suspect]
     Active Substance: RADIUM RA-223 DICHLORIDE
     Indication: HORMONE-REFRACTORY PROSTATE CANCER
     Dosage: 97.10 UCI, ONCE EVERY 28 DAYS
     Route: 042
     Dates: end: 20180920

REACTIONS (2)
  - Death [Fatal]
  - Blood test abnormal [Unknown]

NARRATIVE: CASE EVENT DATE: 2018
